FAERS Safety Report 9198673 (Version 1)
Quarter: 2013Q1

REPORT INFORMATION
  Report Type: Spontaneous
  Country: US (occurrence: US)
  Receive Date: 20130329
  Receipt Date: 20130329
  Transmission Date: 20140127
  Serious: Yes (Other)
  Sender: FDA-Public Use
  Company Number: US-JNJFOC-20130313331

PATIENT
  Age: 76 Year
  Sex: Male

DRUGS (5)
  1. XARELTO [Suspect]
     Indication: ATRIAL FIBRILLATION
     Route: 048
     Dates: start: 20130301, end: 201303
  2. HYDROCHLOROTHIAZIDE [Concomitant]
     Route: 065
  3. COREG [Concomitant]
     Route: 065
  4. LISINOPRIL [Concomitant]
     Route: 065
  5. VICODIN [Concomitant]
     Dosage: AS NEEDED
     Route: 065

REACTIONS (3)
  - Oedema [Not Recovered/Not Resolved]
  - Pain in extremity [Unknown]
  - Hypoaesthesia [Recovering/Resolving]
